FAERS Safety Report 21581089 (Version 1)
Quarter: 2022Q4

REPORT INFORMATION
  Report Type: Spontaneous
  Country: JP (occurrence: JP)
  Receive Date: 20221111
  Receipt Date: 20221111
  Transmission Date: 20230113
  Serious: Yes (Hospitalization, Other)
  Sender: FDA-Public Use
  Company Number: JP-BRISTOL-MYERS SQUIBB COMPANY-2022-132297

PATIENT
  Age: 74 Year
  Sex: Female
  Weight: 37.9 kg

DRUGS (11)
  1. ELIQUIS [Suspect]
     Active Substance: APIXABAN
     Indication: Deep vein thrombosis
     Route: 048
     Dates: start: 20220716, end: 20220905
  2. AVASTIN [Suspect]
     Active Substance: BEVACIZUMAB
     Indication: Glioblastoma
     Dosage: DAILY DOSE: 420 MG X 1
     Route: 041
     Dates: start: 20220808
  3. AVASTIN [Suspect]
     Active Substance: BEVACIZUMAB
     Dosage: DAILY DOSE: 420 MG X 1
     Route: 041
     Dates: start: 20220822
  4. DISOPYRAMIDE [Concomitant]
     Active Substance: DISOPYRAMIDE
     Indication: Product used for unknown indication
     Route: 065
  5. LEVETIRACETAM [Concomitant]
     Active Substance: LEVETIRACETAM
     Indication: Product used for unknown indication
     Route: 065
  6. SULFAMETHOXAZOLE\TRIMETHOPRIM [Concomitant]
     Active Substance: SULFAMETHOXAZOLE\TRIMETHOPRIM
     Indication: Product used for unknown indication
     Route: 065
  7. MAGNESIUM OXIDE [Concomitant]
     Active Substance: MAGNESIUM OXIDE
     Indication: Product used for unknown indication
     Route: 065
  8. INSULIN GLARGINE [Concomitant]
     Active Substance: INSULIN GLARGINE
     Indication: Product used for unknown indication
     Route: 065
  9. INSULIN LISPRO BS [Concomitant]
     Indication: Product used for unknown indication
     Route: 065
  10. TEMODAL [Concomitant]
     Active Substance: TEMOZOLOMIDE
     Indication: Glioblastoma
     Dosage: 75 MG/M2 X 42 DAYS
     Route: 065
     Dates: start: 20220716
  11. TEMODAL [Concomitant]
     Active Substance: TEMOZOLOMIDE
     Dosage: 150 MG/M2 X 5 DAYS
     Route: 065
     Dates: start: 20220916

REACTIONS (5)
  - Lower gastrointestinal haemorrhage [Recovering/Resolving]
  - Decreased appetite [Unknown]
  - Anaemia [Unknown]
  - Rectal ulcer [Unknown]
  - Melaena [Recovered/Resolved]

NARRATIVE: CASE EVENT DATE: 20220818
